FAERS Safety Report 4940167-X (Version None)
Quarter: 2006Q1

REPORT INFORMATION
  Report Type: 
  Country: None (occurrence: None)
  Receive Date: 20060310
  Receipt Date: 20060224
  Transmission Date: 20060701
  Serious: Yes (Hospitalization)
  Sender: FDA-Public Use
  Company Number: GBWYE430226FEB06

PATIENT
  Age: 74 Year
  Sex: Female

DRUGS (6)
  1. ENBREL [Suspect]
     Indication: RHEUMATOID ARTHRITIS
     Route: 058
     Dates: start: 20040101
  2. PREDNISOLONE [Concomitant]
     Dosage: 75MG FREQUENCY UNKNOWN
     Route: 048
  3. FOLIC ACID [Concomitant]
     Indication: RHEUMATOID ARTHRITIS
     Dosage: 5MG FREQUENCY UNKNOWN
  4. ALENDRONIC ACID [Concomitant]
     Indication: OSTEOPOROSIS
  5. CALCICHEW [Concomitant]
     Indication: RHEUMATOID ARTHRITIS
     Dosage: 1 ONCE DAILY
  6. METHOTREXATE [Concomitant]

REACTIONS (3)
  - CARDIAC FAILURE CONGESTIVE [None]
  - PLEURAL EFFUSION [None]
  - TUBERCULOSIS [None]
